FAERS Safety Report 10022787 (Version 1)
Quarter: 2014Q1

REPORT INFORMATION
  Report Type: Spontaneous
  Country: JP (occurrence: JP)
  Receive Date: 20140319
  Receipt Date: 20140319
  Transmission Date: 20141002
  Serious: Yes (Other)
  Sender: FDA-Public Use
  Company Number: JP-PFIZER INC-2014078060

PATIENT
  Age: 66 Year
  Sex: Male

DRUGS (1)
  1. SELARA [Suspect]
     Dosage: 25 MG, DAILY
     Route: 048

REACTIONS (1)
  - Renal impairment [Unknown]
